FAERS Safety Report 5110883-8 (Version None)
Quarter: 2006Q3

REPORT INFORMATION
  Report Type: 
  Country: None (occurrence: None)
  Receive Date: 20060919
  Receipt Date: 20060908
  Transmission Date: 20061208
  Serious: Yes (Hospitalization)
  Sender: FDA-Public Use
  Company Number: T200600804

PATIENT
  Age: 43 Year
  Sex: Female
  Weight: 89 kg

DRUGS (5)
  1. HEXABRIX (IOXAGLATE MEGLUMINE, IOXAGLATE SODIUM) SOLUTION, 320 [Suspect]
     Indication: ARTHROGRAM
     Dosage: 3 ML, SINGLE, INTRA-ARTICULAR
     Route: 014
     Dates: start: 20060703, end: 20060703
  2. ARTIREM (GADOTERIC ACID) [Suspect]
     Indication: ARTHROGRAM
     Dosage: 18 ML, SINGLE, INTRA-ARTICULAR
     Route: 014
     Dates: start: 20060703, end: 20060703
  3. TAVEGYL /00137201/ (CLEMASTINE) [Concomitant]
  4. ZANTIC (RANITIDINE HYDROCHLORIDE) [Concomitant]
  5. SOLU-CORTEF [Concomitant]

REACTIONS (10)
  - BRADYCARDIA [None]
  - COUGH [None]
  - DYSPNOEA [None]
  - EYELID OEDEMA [None]
  - HYPOTENSION [None]
  - LACRIMATION INCREASED [None]
  - PRURITUS [None]
  - RASH [None]
  - SNEEZING [None]
  - VOMITING [None]
